FAERS Safety Report 15506028 (Version 1)
Quarter: 2018Q4

REPORT INFORMATION
  Report Type: Spontaneous
  Country: US (occurrence: US)
  Receive Date: 20181016
  Receipt Date: 20181016
  Transmission Date: 20190205
  Serious: Yes (Other)
  Sender: FDA-Public Use
  Company Number: US-APOTEX-2018AP022994

PATIENT
  Age: 47 Year
  Sex: Female

DRUGS (5)
  1. DULOXETINE. [Suspect]
     Active Substance: DULOXETINE
     Indication: POST BREAST THERAPY PAIN SYNDROME
     Dosage: UNK, UNKNOWN
     Route: 065
  2. AMITRIPTYLINE [Suspect]
     Active Substance: AMITRIPTYLINE
     Indication: POST BREAST THERAPY PAIN SYNDROME
     Dosage: UNK, UNKNOWN
     Route: 065
  3. GABAPENTIN. [Suspect]
     Active Substance: GABAPENTIN
     Indication: POST BREAST THERAPY PAIN SYNDROME
     Dosage: 600 MG, TID
     Route: 065
  4. HYDROCODONE [Suspect]
     Active Substance: HYDROCODONE
     Indication: BREAST PAIN
     Dosage: UNK, UNKNOWN
     Route: 065
  5. OXYCODONE [Suspect]
     Active Substance: OXYCODONE
     Indication: BREAST PAIN
     Dosage: UNK, UNKNOWN
     Route: 065

REACTIONS (1)
  - Drug ineffective [Unknown]
